FAERS Safety Report 7126565-7 (Version None)
Quarter: 2010Q4

REPORT INFORMATION
  Report Type: 
  Country: None (occurrence: None)
  Receive Date: 20101129
  Receipt Date: 20101116
  Transmission Date: 20110411
  Serious: Yes (Hospitalization)
  Sender: FDA-Public Use
  Company Number: DE-CELGENEUS-062-50794-10111966

PATIENT
  Age: 66 Year
  Sex: Male

DRUGS (2)
  1. VIDAZA [Suspect]
     Route: 050
     Dates: end: 20101111
  2. DICLOFENAC SODIUM [Suspect]
     Dosage: HIGH DOSE
     Route: 065

REACTIONS (1)
  - DIARRHOEA HAEMORRHAGIC [None]
